FAERS Safety Report 18631907 (Version 2)
Quarter: 2020Q4

REPORT INFORMATION
  Report Type: Report from Study
  Country: CA (occurrence: CA)
  Receive Date: 20201218
  Receipt Date: 20201231
  Transmission Date: 20210114
  Serious: Yes (Other)
  Sender: FDA-Public Use
  Company Number: CA-JNJFOC-20201225116

PATIENT
  Age: 24 Year
  Sex: Female
  Weight: 65 kg

DRUGS (2)
  1. STELARA [Suspect]
     Active Substance: USTEKINUMAB
     Indication: COLITIS ULCERATIVE
     Dosage: THE PATIENT RECEIVED 3RD 90 MG INFUSION ON 11/DEC/2020 AND PARTIAL MAYO COMPLETED.
     Route: 058
     Dates: start: 20200828
  2. STELARA [Suspect]
     Active Substance: USTEKINUMAB
     Route: 058
     Dates: start: 20201224

REACTIONS (8)
  - Drug ineffective [Unknown]
  - Product use issue [Unknown]
  - General physical health deterioration [Unknown]
  - Drug level below therapeutic [Unknown]
  - Haematochezia [Unknown]
  - Frequent bowel movements [Unknown]
  - Off label use [Unknown]
  - Sinusitis [Recovered/Resolved]

NARRATIVE: CASE EVENT DATE: 2020
